FAERS Safety Report 7478976-8 (Version None)
Quarter: 2011Q2

REPORT INFORMATION
  Report Type: 
  Country: None (occurrence: None)
  Receive Date: 20110511
  Receipt Date: 20110511
  Transmission Date: 20111010
  Serious: No
  Sender: FDA-Public Use
  Company Number: None

PATIENT
  Sex: Male
  Weight: 6.804 kg

DRUGS (1)
  1. LANSOPRAZOLE [Suspect]
     Indication: GASTROOESOPHAGEAL REFLUX DISEASE
     Dosage: ONE 15 MG SOLUTAB TWICE DAILY PO
     Route: 048
     Dates: start: 20110504, end: 20110507

REACTIONS (13)
  - ABNORMAL BEHAVIOUR [None]
  - DISCOMFORT [None]
  - DRUG INEFFECTIVE [None]
  - MIDDLE INSOMNIA [None]
  - MUSCULOSKELETAL STIFFNESS [None]
  - GASTROOESOPHAGEAL REFLUX DISEASE [None]
  - INSOMNIA [None]
  - POSTURE ABNORMAL [None]
  - DISEASE RECURRENCE [None]
  - SCREAMING [None]
  - PRODUCT SUBSTITUTION ISSUE [None]
  - SOMNOLENCE [None]
  - CRYING [None]
